FAERS Safety Report 4981637-8 (Version None)
Quarter: 2006Q2

REPORT INFORMATION
  Report Type: 
  Country: None (occurrence: None)
  Receive Date: 20060425
  Receipt Date: 20060418
  Transmission Date: 20061013
  Serious: Yes (Other)
  Sender: FDA-Public Use
  Company Number: PHBS2006NL05509

PATIENT
  Age: 83 Year
  Sex: Male

DRUGS (5)
  1. EXELON [Suspect]
     Route: 048
     Dates: start: 20050412, end: 20050628
  2. COVERSYL [Concomitant]
     Dosage: 2 MG/UNK
     Route: 048
  3. SELOKEEN [Concomitant]
     Dosage: 50 MG/UNK
     Route: 048
  4. ASCAL [Concomitant]
     Dosage: 38 MG/UNK
     Route: 048
  5. MONOCEDOCARD [Concomitant]
     Dosage: 10 MG, BID

REACTIONS (1)
  - PARKINSONISM [None]
